FAERS Safety Report 7404944-8 (Version None)
Quarter: 2011Q2

REPORT INFORMATION
  Report Type: 
  Country: None (occurrence: None)
  Receive Date: 20110411
  Receipt Date: 20110331
  Transmission Date: 20111010
  Serious: Yes (Other)
  Sender: FDA-Public Use
  Company Number: DE-ELI_LILLY_AND_COMPANY-DE201103008723

PATIENT
  Age: 84 Year
  Sex: Female

DRUGS (3)
  1. MORPHINE [Concomitant]
  2. FORTEO [Suspect]
     Indication: OSTEOPOROSIS
     Dosage: UNK, QD
     Route: 058
     Dates: start: 20100630
  3. DEKRISTOL [Concomitant]

REACTIONS (2)
  - OSTEONECROSIS [None]
  - GINGIVITIS [None]
